FAERS Safety Report 4323708-5 (Version None)
Quarter: 2004Q1

REPORT INFORMATION
  Report Type: 
  Country: None (occurrence: None)
  Receive Date: 20040325
  Receipt Date: 20040325
  Transmission Date: 20041129
  Serious: Yes (Death)
  Sender: FDA-Public Use
  Company Number: None

PATIENT
  Age: 58 Year
  Sex: Female

DRUGS (1)
  1. ONTAK [Suspect]
     Indication: GRAFT VERSUS HOST DISEASE
     Dosage: 300 INTRAVENOUS
     Route: 042
     Dates: start: 20040108, end: 20040115

REACTIONS (12)
  - ABDOMINAL PAIN [None]
  - ABDOMINAL TENDERNESS [None]
  - ENCEPHALOPATHY [None]
  - ENTEROCOCCAL INFECTION [None]
  - EPISTAXIS [None]
  - HEPATIC FAILURE [None]
  - HYPOTENSION [None]
  - LIVER FUNCTION TEST ABNORMAL [None]
  - MALAISE [None]
  - PANCYTOPENIA [None]
  - PYREXIA [None]
  - SEPSIS [None]
